FAERS Safety Report 5259763-8 (Version None)
Quarter: 2007Q1

REPORT INFORMATION
  Report Type: 
  Country: None (occurrence: None)
  Receive Date: 20061117
  Receipt Date: 20060516
  Transmission Date: 20070707
  Serious: Yes (Other)
  Sender: FDA-Public Use
  Company Number: US-JNJFOC-20060503765

PATIENT
  Age: 60 Year
  Sex: Male
  Weight: 81.6475 kg

DRUGS (2)
  1. LEVOQUIN (LEVOFLOXACIN) UNSPECIFIED [Suspect]
     Indication: PROSTATITIS
     Dosage: 500 MG
     Dates: start: 20050902, end: 20050909
  2. CEFTIN [Concomitant]

REACTIONS (1)
  - TENDON RUPTURE [None]
